FAERS Safety Report 4989802-0 (Version None)
Quarter: 2006Q2

REPORT INFORMATION
  Report Type: 
  Country: None (occurrence: None)
  Receive Date: 20060501
  Receipt Date: 20060420
  Transmission Date: 20061013
  Serious: Yes (Other)
  Sender: FDA-Public Use
  Company Number: 2006-03-1007

PATIENT
  Age: 40 Year
  Sex: Female
  Weight: 80 kg

DRUGS (5)
  1. CLARITIN [Suspect]
     Indication: INFECTION
     Dosage: 10 MG QD ORAL
     Route: 048
     Dates: start: 20060303, end: 20060307
  2. CLARITIN [Suspect]
     Indication: OEDEMA
     Dosage: 10 MG QD ORAL
     Route: 048
     Dates: start: 20060303, end: 20060307
  3. CLARITIN [Suspect]
     Indication: PRURITUS
     Dosage: 10 MG QD ORAL
     Route: 048
     Dates: start: 20060303, end: 20060307
  4. PARACETAMOL [Concomitant]
  5. IBUPROFEN [Concomitant]

REACTIONS (6)
  - DRUG INEFFECTIVE [None]
  - INSOMNIA [None]
  - OEDEMA [None]
  - PRURITUS [None]
  - URTICARIA GENERALISED [None]
  - VIRAL INFECTION [None]
